FAERS Safety Report 21203573 (Version 2)
Quarter: 2023Q1

REPORT INFORMATION
  Report Type: Report from Study
  Country: FR (occurrence: FR)
  Receive Date: 20220811
  Receipt Date: 20230103
  Transmission Date: 20230418
  Serious: Yes (Hospitalization)
  Sender: FDA-Public Use
  Company Number: FR-INSMED, INC.-2022-01453-FR

PATIENT
  Age: 50 Year
  Sex: Female

DRUGS (6)
  1. AZITHROMYCIN [Suspect]
     Active Substance: AZITHROMYCIN
     Indication: Toxic skin eruption
     Dosage: UNK
     Route: 065
     Dates: start: 2022, end: 2022
  2. AZITHROMYCIN [Suspect]
     Active Substance: AZITHROMYCIN
     Dosage: UNK
     Route: 065
     Dates: start: 202205, end: 2022
  3. AMIKACIN [Suspect]
     Active Substance: AMIKACIN
     Indication: Toxic skin eruption
     Dosage: UNK
     Route: 042
     Dates: start: 2022, end: 2022
  4. AMIKACIN [Suspect]
     Active Substance: AMIKACIN
     Dosage: UNK
     Route: 042
     Dates: start: 202205, end: 2022
  5. ARIKAYCE [Suspect]
     Active Substance: AMIKACIN
     Indication: Mycobacterium abscessus infection
     Dosage: 590 MG, 1X/DAY
     Route: 055
     Dates: start: 20220520, end: 20220520
  6. ARIKAYCE [Suspect]
     Active Substance: AMIKACIN
     Dosage: 590 MG
     Route: 055
     Dates: start: 20221203

REACTIONS (10)
  - Toxic skin eruption [Recovered/Resolved]
  - Toxic skin eruption [Unknown]
  - Fatigue [Unknown]
  - Cough [Unknown]
  - Productive cough [Unknown]
  - Headache [Unknown]
  - Dysgeusia [Unknown]
  - Dyspnoea [Unknown]
  - Tongue discolouration [Unknown]
  - Off label use [Unknown]

NARRATIVE: CASE EVENT DATE: 20220101
